FAERS Safety Report 6228960-7 (Version None)
Quarter: 2009Q2

REPORT INFORMATION
  Report Type: 
  Country: None (occurrence: None)
  Receive Date: 20090615
  Receipt Date: 20090611
  Transmission Date: 20091009
  Serious: Yes (Hospitalization)
  Sender: FDA-Public Use
  Company Number: JP-BRISTOL-MYERS SQUIBB COMPANY-14660138

PATIENT
  Age: 69 Year
  Sex: Male
  Weight: 55 kg

DRUGS (13)
  1. CARBOPLATIN [Suspect]
     Indication: NON-SMALL CELL LUNG CANCER
     Route: 065
  2. PACLITAXEL [Suspect]
     Indication: NON-SMALL CELL LUNG CANCER
     Route: 065
  3. GASTER D [Concomitant]
  4. ALLEGRA [Concomitant]
  5. SENNOSIDE A+B [Concomitant]
  6. HARNAL [Concomitant]
  7. RINDERON [Concomitant]
  8. MAGMITT [Concomitant]
     Dosage: MAGMITT KENEI
  9. RIZABEN [Concomitant]
  10. VENA [Concomitant]
  11. DECADRON [Concomitant]
  12. ZANTAC [Concomitant]
  13. GRANISETRON HCL [Concomitant]

REACTIONS (1)
  - CHEST DISCOMFORT [None]
